FAERS Safety Report 4400958-0 (Version None)
Quarter: 2004Q3

REPORT INFORMATION
  Report Type: 
  Country: None (occurrence: None)
  Receive Date: 20040907
  Receipt Date: 20030826
  Transmission Date: 20050211
  Serious: No
  Sender: FDA-Public Use
  Company Number: US-BRISTOL-MYERS SQUIBB COMPANY-12366423

PATIENT
  Age: 75 Year
  Sex: Female
  Weight: 68 kg

DRUGS (8)
  1. COUMADIN [Suspect]
     Indication: ATRIAL FIBRILLATION
     Dosage: 5 MG SUNDAY, TUESDAY, WEDNESDAY, FRIDAY AND SATURDAY, ALTERNATING WITH 2.5 MG ON MONDAY AND THURSDAY
     Route: 048
  2. COUMADIN [Suspect]
     Indication: MITRAL VALVE PROLAPSE
     Dosage: 5 MG SUNDAY, TUESDAY, WEDNESDAY, FRIDAY AND SATURDAY, ALTERNATING WITH 2.5 MG ON MONDAY AND THURSDAY
     Route: 048
  3. CELEBREX [Concomitant]
  4. SYNTHROID [Concomitant]
  5. DILTIAZEM HCL TABS [Concomitant]
  6. ZETIA [Concomitant]
  7. BENICAR [Concomitant]
  8. PRAVACHOL [Concomitant]

REACTIONS (4)
  - INTERNATIONAL NORMALISED RATIO DECREASED [None]
  - MUSCLE TWITCHING [None]
  - STOMACH DISCOMFORT [None]
  - TREATMENT NONCOMPLIANCE [None]
